FAERS Safety Report 8097257 (Version 6)
Quarter: 2021Q4

REPORT INFORMATION
  Report Type: Spontaneous
  Country: US (occurrence: US)
  Receive Date: 20110819
  Receipt Date: 20211216
  Transmission Date: 20220303
  Serious: Yes (Other)
  Sender: FDA-Public Use
  Company Number: US-PFIZER INC-2011188688

PATIENT
  Age: 69 Year
  Sex: Female
  Weight: 52.2 kg

DRUGS (3)
  1. PREMPRO [Suspect]
     Active Substance: ESTROGENS, CONJUGATED\MEDROXYPROGESTERONE ACETATE
     Indication: Hormone therapy
     Dosage: UNK, 1X/DAY [0.625/2.5 MG, 1X/DAY]
     Route: 048
  2. PREMPRO [Suspect]
     Active Substance: ESTROGENS, CONJUGATED\MEDROXYPROGESTERONE ACETATE
     Dosage: 0.5 DF, DAILY (1/2 TABLET PER DAY)
     Route: 048
  3. CALCIUM [Concomitant]
     Active Substance: CALCIUM
     Dosage: UNK

REACTIONS (7)
  - Myocardial infarction [Unknown]
  - Skin wrinkling [Not Recovered/Not Resolved]
  - Dry skin [Not Recovered/Not Resolved]
  - Emotional disorder [Recovered/Resolved]
  - Asthenia [Recovered/Resolved]
  - Decreased interest [Not Recovered/Not Resolved]
  - Cold-stimulus headache [Unknown]

NARRATIVE: CASE EVENT DATE: 20110101
